FAERS Safety Report 14822944 (Version 1)
Quarter: 2018Q2

REPORT INFORMATION
  Report Type: Spontaneous
  Country: US (occurrence: US)
  Receive Date: 20180427
  Receipt Date: 20180427
  Transmission Date: 20180711
  Serious: Yes (Hospitalization)
  Sender: FDA-Public Use
  Company Number: US-ALLERGAN-1823213US

PATIENT
  Age: 67 Year
  Sex: Female

DRUGS (9)
  1. VALSARTAN. [Concomitant]
     Active Substance: VALSARTAN
     Dosage: 80 MG, QD
  2. SOLIFENACIN [Concomitant]
     Active Substance: SOLIFENACIN
     Dosage: 5 MG, QD
  3. NABUMETONE. [Concomitant]
     Active Substance: NABUMETONE
     Dosage: 500 MG, PRN
  4. CLONAZEPAM. [Concomitant]
     Active Substance: CLONAZEPAM
     Dosage: 0.5 MG, QD
  5. METOPROLOL. [Concomitant]
     Active Substance: METOPROLOL
     Dosage: 25 MG, QD
  6. ARIPIPRAZOLE. [Concomitant]
     Active Substance: ARIPIPRAZOLE
     Dosage: 2 MG, QD
  7. IMIPRAMINE [Concomitant]
     Active Substance: IMIPRAMINE
     Dosage: 50 MG, QD
  8. FLUOXETINE HCL UNK [Suspect]
     Active Substance: FLUOXETINE HYDROCHLORIDE
     Indication: ANXIETY DISORDER
     Dosage: 20 MG, QD
     Route: 065
  9. SIMVASTATIN. [Concomitant]
     Active Substance: SIMVASTATIN
     Dosage: 20 MG, QD

REACTIONS (2)
  - Stress cardiomyopathy [Unknown]
  - Off label use [Unknown]
